FAERS Safety Report 5888559-9 (Version None)
Quarter: 2008Q3

REPORT INFORMATION
  Report Type: 
  Country: None (occurrence: None)
  Receive Date: 20080918
  Receipt Date: 20080909
  Transmission Date: 20090109
  Serious: Yes (Hospitalization)
  Sender: FDA-Public Use
  Company Number: US-B.I. PHARMACEUTICALS,INC./RIDGEFIELD-2008-BP-13801BP

PATIENT
  Sex: Female
  Weight: 69 kg

DRUGS (7)
  1. BIBR 1048 (DABIGATRAN ETEXILATE) (BLIND) [Suspect]
     Indication: CEREBROVASCULAR ACCIDENT PROPHYLAXIS
     Route: 048
  2. BIBR 1048 (DABIGATRAN ETEXILATE) (BLIND) [Suspect]
     Indication: THROMBOSIS PROPHYLAXIS
  3. PERSANTINE [Suspect]
  4. ASPIRIN [Concomitant]
     Indication: CARDIOVASCULAR EVENT PROPHYLAXIS
     Dosage: 81MG
     Route: 048
     Dates: start: 19970217
  5. NORVASC [Concomitant]
     Indication: HYPERTENSION
     Dosage: 10MG
     Route: 048
     Dates: start: 20041123
  6. LIPITOR [Concomitant]
     Indication: HYPERLIPIDAEMIA
     Dosage: 10MG
     Route: 048
     Dates: start: 20050315
  7. DIOVAN HCT [Concomitant]
     Indication: HYPERTENSION
     Route: 048
     Dates: start: 20010402

REACTIONS (2)
  - CHEST DISCOMFORT [None]
  - MYOCARDIAL ISCHAEMIA [None]
